FAERS Safety Report 23954769 (Version 2)
Quarter: 2024Q4

REPORT INFORMATION
  Report Type: Spontaneous
  Country: DE (occurrence: DE)
  Receive Date: 20240610
  Receipt Date: 20241004
  Transmission Date: 20250115
  Serious: Yes (Hospitalization, Other)
  Sender: CELLTRION
  Company Number: DE-CELLTRION INC.-2024DE013450

PATIENT

DRUGS (7)
  1. AVASTIN [Suspect]
     Active Substance: BEVACIZUMAB
     Indication: Product used for unknown indication
     Dosage: UNK
  2. BEVACIZUMAB [Suspect]
     Active Substance: BEVACIZUMAB
     Indication: Product used for unknown indication
     Dosage: UNK
  3. DEXAMETHASONE [Concomitant]
     Active Substance: DEXAMETHASONE
  4. GRANISETRON [Concomitant]
     Active Substance: GRANISETRON
  5. IRINOTECAN [Concomitant]
     Active Substance: IRINOTECAN
  6. FLUOROURACIL [Concomitant]
     Active Substance: FLUOROURACIL
  7. LEUCOVORIN CALCIUM [Concomitant]
     Active Substance: LEUCOVORIN CALCIUM

REACTIONS (5)
  - Abdominal pain upper [Unknown]
  - Abdominal pain upper [Unknown]
  - Ileus [Unknown]
  - Vomiting [Unknown]
  - Constipation [Unknown]
